FAERS Safety Report 8625550-3 (Version None)
Quarter: 2012Q3

REPORT INFORMATION
  Report Type: 
  Country: None (occurrence: None)
  Receive Date: 20120827
  Receipt Date: 20120823
  Transmission Date: 20120928
  Serious: Yes (Hospitalization)
  Sender: FDA-Public Use
  Company Number: FR-ROCHE-1100060

PATIENT
  Sex: Male

DRUGS (18)
  1. CYTARABINE [Concomitant]
     Route: 037
  2. CYCLOPHOSPHAMIDE [Suspect]
     Indication: BURKITT'S LYMPHOMA
     Route: 042
     Dates: start: 20120521, end: 20120523
  3. CALCIPARINE [Concomitant]
     Route: 058
  4. PREDNISONE TAB [Suspect]
     Indication: BURKITT'S LYMPHOMA
     Route: 048
     Dates: start: 20120520, end: 20120524
  5. LEVOLEUCOVORIN CALCIUM [Suspect]
     Indication: PRODUCT USED FOR UNKNOWN INDICATION
     Route: 042
     Dates: start: 20120521, end: 20120525
  6. DOXORUBICIN HYDROCHLORIDE [Suspect]
     Indication: BURKITT'S LYMPHOMA
     Route: 042
     Dates: start: 20120521, end: 20120521
  7. ONDANSETRON HYDROCHLORIDE [Concomitant]
     Route: 042
  8. ALLOPURINOL [Concomitant]
     Route: 048
  9. VINCRISTINE [Suspect]
     Dates: start: 20120525
  10. VALACICLOVIR HCL [Concomitant]
     Route: 048
  11. NEXIUM [Concomitant]
     Route: 048
  12. MABTHERA [Suspect]
     Indication: BURKITT'S LYMPHOMA
     Route: 042
     Dates: start: 20120519, end: 20120519
  13. LYRICA [Concomitant]
     Route: 048
  14. VINCRISTINE [Suspect]
     Indication: PRODUCT USED FOR UNKNOWN INDICATION
     Route: 042
     Dates: start: 20120520
  15. BACTRIM DS [Concomitant]
     Route: 048
  16. METHOTREXATE DISODIUM [Suspect]
     Indication: BURKITT'S LYMPHOMA
     Route: 037
     Dates: start: 20120520
  17. METHOTREXATE DISODIUM [Suspect]
     Route: 037
     Dates: start: 20120525
  18. EMEND [Concomitant]
     Route: 048

REACTIONS (1)
  - RENAL FAILURE ACUTE [None]
